FAERS Safety Report 15645604 (Version 1)
Quarter: 2018Q4

REPORT INFORMATION
  Report Type: Spontaneous
  Country: US (occurrence: US)
  Receive Date: 20181121
  Receipt Date: 20181121
  Transmission Date: 20190205
  Serious: No
  Sender: FDA-Public Use
  Company Number: US-ANIPHARMA-2018-US-000673

PATIENT
  Age: 37 Year
  Sex: Male
  Weight: 83.92 kg

DRUGS (5)
  1. STELAZINE [Concomitant]
     Active Substance: TRIFLUOPERAZINE HYDROCHLORIDE
  2. HYOSCYAMINE. [Concomitant]
     Active Substance: HYOSCYAMINE
  3. BENZTROPINE. [Concomitant]
     Active Substance: BENZTROPINE
     Dosage: 0.5MG-1 MG TWICE A DAY
  4. ABILIFY [Concomitant]
     Active Substance: ARIPIPRAZOLE
  5. DIPHENOXYLATE HYDROCHLORIDE + ATROPINE SULFATE (NON-SPECIFIC) [Suspect]
     Active Substance: ATROPINE SULFATE\DIPHENOXYLATE HYDROCHLORIDE
     Indication: DIARRHOEA
     Dosage: 2 TABLETS EVERY 8HR
     Route: 048
     Dates: start: 201701

REACTIONS (3)
  - Nausea [Not Recovered/Not Resolved]
  - Abdominal pain upper [Not Recovered/Not Resolved]
  - Diarrhoea [Not Recovered/Not Resolved]

NARRATIVE: CASE EVENT DATE: 20180112
